FAERS Safety Report 9476025 (Version 1)
Quarter: 2013Q3

REPORT INFORMATION
  Report Type: Spontaneous
  Country: FR (occurrence: FR)
  Receive Date: 20130826
  Receipt Date: 20130826
  Transmission Date: 20140515
  Serious: Yes (Hospitalization)
  Sender: FDA-Public Use
  Company Number: FR-PFIZER INC-2013242039

PATIENT
  Age: 44 Year
  Sex: Male

DRUGS (6)
  1. TAZOCILLINE [Suspect]
     Indication: ERYSIPELAS
     Dosage: 4 G, 3X/DAY
     Route: 042
     Dates: start: 20130518, end: 20130524
  2. LASILIX [Concomitant]
     Dosage: 40 PER DAY
  3. CARDENSIEL [Concomitant]
     Dosage: 2.5 MG, DAILY
  4. ALDACTONE [Concomitant]
     Dosage: 25 MG, DAILY
  5. PRADAXA [Concomitant]
     Dosage: 110 MG, DAILY
  6. TRIATEC [Concomitant]
     Dosage: 2.5 MG, DAILY

REACTIONS (1)
  - Hypersensitivity vasculitis [Recovered/Resolved]
